FAERS Safety Report 15755245 (Version 3)
Quarter: 2019Q1

REPORT INFORMATION
  Report Type: Report from Study
  Country: DE (occurrence: DE)
  Receive Date: 20181224
  Receipt Date: 20190121
  Transmission Date: 20190417
  Serious: Yes (Other)
  Sender: FDA-Public Use
  Company Number: DE-BRISTOL-MYERS SQUIBB COMPANY-BMS-2018-119561

PATIENT

DRUGS (1)
  1. NIVOLUMAB [Suspect]
     Active Substance: NIVOLUMAB
     Indication: HODGKIN^S DISEASE
     Route: 065

REACTIONS (25)
  - Hypoalbuminaemia [Unknown]
  - Dermatitis acneiform [Unknown]
  - Diarrhoea [Unknown]
  - Bone pain [Unknown]
  - Infection [Unknown]
  - Infestation [Unknown]
  - Sepsis [Unknown]
  - Hypocalcaemia [Unknown]
  - Hypoacusis [Unknown]
  - Hypokalaemia [Unknown]
  - Nausea [Unknown]
  - Neutrophil count decreased [Unknown]
  - Peripheral sensory neuropathy [Unknown]
  - Pneumonia [Unknown]
  - Dyspnoea [Unknown]
  - Fatigue [Unknown]
  - Cough [Unknown]
  - Pollakiuria [Unknown]
  - Dizziness [Unknown]
  - Back pain [Unknown]
  - Lung infection [Unknown]
  - Anaemia [Unknown]
  - Lymphocyte count decreased [Unknown]
  - Constipation [Unknown]
  - Headache [Unknown]
